FAERS Safety Report 6456427-X (Version None)
Quarter: 2009Q4

REPORT INFORMATION
  Report Type: 
  Country: None (occurrence: None)
  Receive Date: 20091125
  Receipt Date: 20091113
  Transmission Date: 20100525
  Serious: Yes (Hospitalization, Other)
  Sender: FDA-Public Use
  Company Number: PHHY2009JP47442

PATIENT
  Sex: Male

DRUGS (10)
  1. NEORAL [Suspect]
     Indication: ECZEMA NUMMULAR
     Dosage: 100 MG, BID
     Route: 048
     Dates: start: 20030703, end: 20041104
  2. NEORAL [Suspect]
     Dosage: 250 MG/DAY
     Route: 048
     Dates: start: 20041105, end: 20060330
  3. NEORAL [Suspect]
     Dosage: 150 MG/DAY
     Route: 048
     Dates: start: 20060331, end: 20091028
  4. NEORAL [Suspect]
     Dosage: 100 MG/DAY
     Route: 048
     Dates: start: 20091029, end: 20091030
  5. NEORAL [Suspect]
     Dosage: 50 MG/DAY
     Route: 048
     Dates: start: 20091031
  6. LIPITOR [Suspect]
     Dosage: 5 MG/DAY
     Route: 048
     Dates: start: 20060818, end: 20091029
  7. ATARAX [Concomitant]
     Dosage: 95 MG, UNK
     Route: 048
     Dates: start: 20080125
  8. TALION [Concomitant]
     Dosage: 20 MG, UNK
     Route: 048
     Dates: start: 20090508
  9. ZYLORIC [Concomitant]
     Dosage: 50 MG, UNK
     Route: 048
     Dates: start: 20071005
  10. LASIX [Concomitant]
     Dosage: 40 MG, UNK
     Route: 048
     Dates: start: 20090508, end: 20091108

REACTIONS (6)
  - ANAEMIA MACROCYTIC [None]
  - BLOOD BILIRUBIN INCREASED [None]
  - DYSPNOEA EXERTIONAL [None]
  - HAEMOLYTIC ANAEMIA [None]
  - PRURITUS [None]
  - RENAL IMPAIRMENT [None]
